FAERS Safety Report 24168886 (Version 1)
Quarter: 2024Q3

REPORT INFORMATION
  Report Type: Spontaneous
  Country: US (occurrence: US)
  Receive Date: 20240802
  Receipt Date: 20240802
  Transmission Date: 20241017
  Serious: No
  Sender: BIOMARIN
  Company Number: US-SA-SAC20240725001502

PATIENT

DRUGS (1)
  1. LARONIDASE [Suspect]
     Active Substance: LARONIDASE
     Indication: Mucopolysaccharidosis I
     Dosage: 37.7 (UNITS NOT SPECIFIED), QW
     Route: 042
     Dates: start: 202010

REACTIONS (2)
  - Obstructive airways disorder [Unknown]
  - Cardiac disorder [Unknown]
